FAERS Safety Report 25952263 (Version 1)
Quarter: 2025Q4

REPORT INFORMATION
  Report Type: Spontaneous
  Country: US (occurrence: US)
  Receive Date: 20251023
  Receipt Date: 20251023
  Transmission Date: 20260117
  Serious: Yes (Other)
  Sender: COOPERSURGICAL
  Company Number: US-COOPERSURGICAL, INC.-2025CPS007462

PATIENT
  Sex: Female
  Weight: 77.098 kg

DRUGS (1)
  1. PARAGARD T 380A [Suspect]
     Active Substance: COPPER
     Dosage: UNK
     Route: 015

REACTIONS (9)
  - Uterine leiomyoma [Recovered/Resolved]
  - Uterine inflammation [Recovered/Resolved]
  - Fatigue [Unknown]
  - Abnormal uterine bleeding [Recovered/Resolved]
  - Nausea [Unknown]
  - Dizziness [Unknown]
  - Heavy menstrual bleeding [Recovered/Resolved]
  - Device dislocation [Unknown]
  - Intermenstrual bleeding [Recovered/Resolved]

NARRATIVE: CASE EVENT DATE: 20150101
